FAERS Safety Report 10170056 (Version 1)
Quarter: 2014Q2

REPORT INFORMATION
  Report Type: Spontaneous
  Country: AE (occurrence: AE)
  Receive Date: 20140513
  Receipt Date: 20140513
  Transmission Date: 20141212
  Serious: Yes (Other)
  Sender: FDA-Public Use
  Company Number: AE-MYLANLABS-2014S1010051

PATIENT
  Age: 3 Year
  Sex: Male

DRUGS (4)
  1. CYSTAGON CAPSULES [Suspect]
     Indication: CYSTINOSIS
     Route: 048
     Dates: start: 201308
  2. ALFACALCIDOL [Concomitant]
  3. PHOSPHATE SANDOZ [Concomitant]
  4. INDOMETACINE [Concomitant]

REACTIONS (3)
  - Drug ineffective [Recovered/Resolved]
  - White blood cell disorder [Recovered/Resolved]
  - Incorrect route of drug administration [Not Recovered/Not Resolved]
